FAERS Safety Report 12801667 (Version 8)
Quarter: 2017Q1

REPORT INFORMATION
  Report Type: Spontaneous
  Country: US (occurrence: US)
  Receive Date: 20161003
  Receipt Date: 20170330
  Transmission Date: 20170428
  Serious: Yes (Hospitalization)
  Sender: FDA-Public Use
  Company Number: US-PFIZER INC-2016457014

PATIENT
  Age: 73 Year
  Sex: Male
  Weight: 93 kg

DRUGS (27)
  1. SUTENT [Suspect]
     Active Substance: SUNITINIB MALATE
     Dosage: 37.5 MG, DAILY (4 WEEKS ON/2 WEEK OFF)
     Route: 048
     Dates: start: 20160921, end: 20170310
  2. SUTENT [Suspect]
     Active Substance: SUNITINIB MALATE
     Indication: LUNG NEOPLASM MALIGNANT
     Dosage: 37.5 MG, CYCLIC, (DAILY 28 DAYS ON/14 DAYS OFF, ALSO REPORTED AS 4 WEEKS ON/2 WEEKS OFF)
     Dates: start: 20160820
  3. VITAMIN B [Concomitant]
     Active Substance: VITAMIN B
     Dosage: UNK
  4. PROAIR HFA [Concomitant]
     Active Substance: ALBUTEROL SULFATE
     Dosage: UNK
  5. REFRESH [Concomitant]
     Active Substance: UNSPECIFIED INGREDIENT
     Dosage: UNK
  6. BABY ASPIRIN [Concomitant]
     Active Substance: ASPIRIN
     Dosage: UNK
  7. SUTENT [Suspect]
     Active Substance: SUNITINIB MALATE
     Dosage: 37.5 MG, DAILY (4 WEEKS ON/2 WEEK OFF)
     Route: 048
     Dates: start: 20160920
  8. SUTENT [Suspect]
     Active Substance: SUNITINIB MALATE
     Dosage: 50 MG, 1X/DAY
     Dates: start: 20160930, end: 20161027
  9. SUTENT [Suspect]
     Active Substance: SUNITINIB MALATE
     Dosage: 50 MG, ONCE A DAY
     Dates: start: 20160930, end: 20161027
  10. NEXIUM [Concomitant]
     Active Substance: ESOMEPRAZOLE MAGNESIUM
     Dosage: UNK
  11. LIPITOR [Concomitant]
     Active Substance: ATORVASTATIN CALCIUM
     Dosage: UNK
  12. ADVAIR HFA [Concomitant]
     Active Substance: FLUTICASONE PROPIONATE\SALMETEROL XINAFOATE
     Dosage: UNK
  13. SUTENT [Suspect]
     Active Substance: SUNITINIB MALATE
     Dosage: UNK
     Dates: end: 20170310
  14. TIMOLOL. [Concomitant]
     Active Substance: TIMOLOL
     Dosage: UNK
  15. SPIRIVA [Concomitant]
     Active Substance: TIOTROPIUM BROMIDE MONOHYDRATE
     Dosage: UNK
  16. SUTENT [Suspect]
     Active Substance: SUNITINIB MALATE
     Dosage: 37.5 MG, 1X/DAY
     Dates: start: 20161111, end: 20161208
  17. SUTENT [Suspect]
     Active Substance: SUNITINIB MALATE
     Dosage: 37.5 MG, 1X/DAY
     Dates: start: 20161224, end: 20170120
  18. SUTENT [Suspect]
     Active Substance: SUNITINIB MALATE
     Dosage: 37.5 MG, 1X/DAY
     Dates: start: 20170204, end: 20170303
  19. SUTENT [Suspect]
     Active Substance: SUNITINIB MALATE
     Dosage: 50 MG, CYCLIC (28 DAYS ON/14 DAYS)
     Dates: start: 20161001
  20. SUTENT [Suspect]
     Active Substance: SUNITINIB MALATE
     Dosage: 37.5 MG, ONCE A DAY
     Dates: start: 20161111, end: 20161208
  21. CIALIS [Concomitant]
     Active Substance: TADALAFIL
     Dosage: UNK
  22. SUTENT [Suspect]
     Active Substance: SUNITINIB MALATE
     Indication: RENAL CELL CARCINOMA
     Dosage: 37.5 MG, 1X/DAY
     Dates: start: 20160819, end: 20160915
  23. SUTENT [Suspect]
     Active Substance: SUNITINIB MALATE
     Dosage: 37.5 MG, ONCE A DAY
     Dates: start: 20161224, end: 20170120
  24. SUTENT [Suspect]
     Active Substance: SUNITINIB MALATE
     Dosage: 37.5 MG, ONCE A DAY
     Dates: start: 20170204, end: 20170303
  25. VALSARTAN. [Concomitant]
     Active Substance: VALSARTAN
     Dosage: UNK
  26. COREG [Concomitant]
     Active Substance: CARVEDILOL
     Dosage: UNK
  27. AMLODIPINE [Concomitant]
     Active Substance: AMLODIPINE BESYLATE
     Dosage: UNK

REACTIONS (18)
  - Hyperkeratosis [Recovered/Resolved]
  - Pain in extremity [Recovered/Resolved]
  - Blister [Unknown]
  - Dyspnoea [Unknown]
  - Palmar-plantar erythrodysaesthesia syndrome [Not Recovered/Not Resolved]
  - Decreased appetite [Recovered/Resolved]
  - Neoplasm progression [Unknown]
  - Peripheral swelling [Recovered/Resolved]
  - Muscle spasms [Recovered/Resolved]
  - Musculoskeletal pain [Recovered/Resolved]
  - Gait disturbance [Recovered/Resolved]
  - Pleural effusion [Recovering/Resolving]
  - Cough [Unknown]
  - Fatigue [Recovered/Resolved]
  - Constipation [Recovered/Resolved]
  - Drug dose omission [Recovered/Resolved]
  - Back pain [Recovered/Resolved]
  - Diarrhoea [Recovered/Resolved]

NARRATIVE: CASE EVENT DATE: 20160819
